FAERS Safety Report 6581578-9 (Version None)
Quarter: 2010Q1

REPORT INFORMATION
  Report Type: 
  Country: None (occurrence: None)
  Receive Date: 20100215
  Receipt Date: 20100208
  Transmission Date: 20100710
  Serious: Yes (Death)
  Sender: FDA-Public Use
  Company Number: JP-JNJFOC-20100201423

PATIENT
  Age: 80 Year
  Sex: Female

DRUGS (4)
  1. DUROTEP MT PATCH [Suspect]
     Indication: CANCER PAIN
     Route: 062
  2. DUROTEP MT PATCH [Suspect]
     Route: 062
  3. NOVAMIN [Concomitant]
     Route: 065
  4. MORPHINE HYDROCHLORIDE [Concomitant]
     Route: 065

REACTIONS (2)
  - BLOOD PRESSURE DECREASED [None]
  - HEPATIC NEOPLASM MALIGNANT [None]
